FAERS Safety Report 13491973 (Version 2)
Quarter: 2017Q2

REPORT INFORMATION
  Report Type: Report from Study
  Country: None (occurrence: SE)
  Receive Date: 20170427
  Receipt Date: 20170608
  Transmission Date: 20170830
  Serious: Yes (Hospitalization)
  Sender: FDA-Public Use
  Company Number: SE-ABBVIE-17K-150-1956192-00

PATIENT
  Sex: Male
  Weight: 70 kg

DRUGS (3)
  1. DUODOPA [Suspect]
     Active Substance: CARBIDOPA\LEVODOPA
     Indication: PARKINSON^S DISEASE
     Route: 050
     Dates: start: 20130910, end: 20131030
  2. DUODOPA [Suspect]
     Active Substance: CARBIDOPA\LEVODOPA
     Dosage: CD: 2.1ML/H
     Route: 050
     Dates: start: 20131030
  3. DUODOPA [Suspect]
     Active Substance: CARBIDOPA\LEVODOPA
     Dosage: WHEN THE PATIENT WAS SICK THE CD WAS 2.6 ML/H AND THE MD 10 ML/H
     Route: 050

REACTIONS (10)
  - Hyperkinesia [Recovered/Resolved]
  - Infection [Recovered/Resolved]
  - Anaemia [Recovered/Resolved]
  - Confusional state [Not Recovered/Not Resolved]
  - Traumatic haematoma [Recovering/Resolving]
  - Fall [Recovered/Resolved]
  - General physical health deterioration [Recovered/Resolved]
  - Incorrect route of drug administration [Not Recovered/Not Resolved]
  - Blood disorder [Unknown]
  - Blood test abnormal [Recovered/Resolved]

NARRATIVE: CASE EVENT DATE: 2017
